FAERS Safety Report 9685144 (Version 1)
Quarter: 2013Q4

REPORT INFORMATION
  Report Type: Spontaneous
  Country: US (occurrence: None)
  Receive Date: 20131111
  Receipt Date: 20131111
  Transmission Date: 20140711
  Serious: Yes (Hospitalization)
  Sender: FDA-Public Use
  Company Number: None

PATIENT
  Sex: Female

DRUGS (2)
  1. SIROLIMUS [Suspect]
  2. NOVOLOG [Suspect]

REACTIONS (7)
  - Mouth ulceration [None]
  - Constipation [None]
  - Pharyngitis streptococcal [None]
  - Urinary tract infection [None]
  - Pruritus [None]
  - Paraesthesia [None]
  - Paraesthesia [None]
